FAERS Safety Report 5501181-9 (Version None)
Quarter: 2007Q4

REPORT INFORMATION
  Report Type: 
  Country: None (occurrence: None)
  Receive Date: 20071029
  Receipt Date: 20071003
  Transmission Date: 20080405
  Serious: No
  Sender: FDA-Public Use
  Company Number: US-BOEHRINGER INGELHEIM PHARMACEUTICALS, INC.-2007-BP-22199BP

PATIENT
  Sex: Female

DRUGS (1)
  1. SPIRIVA [Suspect]
     Indication: CHRONIC OBSTRUCTIVE PULMONARY DISEASE
     Route: 055
     Dates: start: 20050101

REACTIONS (8)
  - BLEPHARITIS [None]
  - CORNEAL DISORDER [None]
  - DRY EYE [None]
  - EYE DISCHARGE [None]
  - EYE HAEMORRHAGE [None]
  - EYE INFECTION [None]
  - EYE PAIN [None]
  - MADAROSIS [None]
